FAERS Safety Report 18250339 (Version 1)
Quarter: 2020Q3

REPORT INFORMATION
  Report Type: Report from Study
  Country: CA (occurrence: CA)
  Receive Date: 20200909
  Receipt Date: 20200909
  Transmission Date: 20201103
  Serious: Yes (Other)
  Sender: FDA-Public Use
  Company Number: CA-JNJFOC-20190930999

PATIENT
  Age: 12 Year
  Sex: Female

DRUGS (2)
  1. REMICADE [Suspect]
     Active Substance: INFLIXIMAB
     Indication: ANASTOMOTIC ULCER
     Route: 042
  2. REMICADE [Suspect]
     Active Substance: INFLIXIMAB
     Indication: SHORT-BOWEL SYNDROME
     Route: 042

REACTIONS (5)
  - Therapeutic response decreased [Unknown]
  - Product use in unapproved indication [Unknown]
  - Anastomotic ulcer [Unknown]
  - Short-bowel syndrome [Unknown]
  - Off label use [Unknown]
